FAERS Safety Report 7713805-6 (Version None)
Quarter: 2011Q3

REPORT INFORMATION
  Report Type: 
  Country: None (occurrence: None)
  Receive Date: 20110826
  Receipt Date: 20110823
  Transmission Date: 20111222
  Serious: No
  Sender: FDA-Public Use
  Company Number: US-PFIZER INC-2011196394

PATIENT
  Sex: Female

DRUGS (1)
  1. AMIODARONE HCL [Suspect]
     Dosage: 200 MG, 1X/DAY

REACTIONS (3)
  - OEDEMA PERIPHERAL [None]
  - FATIGUE [None]
  - WEIGHT INCREASED [None]
